FAERS Safety Report 9048845 (Version 2)
Quarter: 2013Q1

REPORT INFORMATION
  Report Type: Spontaneous
  Country: US (occurrence: None)
  Receive Date: 20130116
  Receipt Date: 20130205
  Transmission Date: 20140127
  Serious: Yes (Other)
  Sender: FDA-Public Use
  Company Number: 2013P1000302

PATIENT
  Age: 50 Year
  Sex: Female

DRUGS (2)
  1. INFUMORPH [Suspect]
     Indication: POST LAMINECTOMY SYNDROME
  2. INFUMORPH [Suspect]
     Indication: SPINAL PAIN

REACTIONS (3)
  - No therapeutic response [None]
  - Device occlusion [None]
  - Device failure [None]
